FAERS Safety Report 8579860-9 (Version None)
Quarter: 2012Q3

REPORT INFORMATION
  Report Type: 
  Country: None (occurrence: None)
  Receive Date: 20120808
  Receipt Date: 20120801
  Transmission Date: 20120928
  Serious: Yes (Hospitalization)
  Sender: FDA-Public Use
  Company Number: US-VERTEX PHARMACEUTICALS INC.-AE-2012-008373

PATIENT
  Sex: Female

DRUGS (4)
  1. PEGASYS [Concomitant]
     Indication: HEPATITIS C
     Dates: start: 20120420
  2. RIBAVIRIN [Concomitant]
     Indication: HEPATITIS C
     Dates: start: 20120420
  3. LEVOTHROID [Concomitant]
     Dates: start: 20090101
  4. INCIVEK [Suspect]
     Indication: HEPATITIS C
     Route: 048
     Dates: start: 20120420, end: 20120620

REACTIONS (5)
  - PHOTOSENSITIVITY REACTION [None]
  - RASH GENERALISED [None]
  - EYE SWELLING [None]
  - ANAEMIA [None]
  - FATIGUE [None]
